FAERS Safety Report 9482681 (Version 1)
Quarter: 2013Q3

REPORT INFORMATION
  Report Type: Report from Study
  Country: CA (occurrence: CA)
  Receive Date: 20130828
  Receipt Date: 20130828
  Transmission Date: 20140515
  Serious: Yes (Other)
  Sender: FDA-Public Use
  Company Number: CA-JNJFOC-20130813611

PATIENT
  Age: 69 Year
  Sex: Male
  Weight: 93.6 kg

DRUGS (7)
  1. REMICADE [Suspect]
     Indication: COLITIS ULCERATIVE
     Route: 042
     Dates: start: 201207
  2. ATENOLOL [Concomitant]
  3. OMEPRAZOLE [Concomitant]
  4. FLOMAX [Concomitant]
  5. MEZAVANT [Concomitant]
  6. FENOFIBRATE [Concomitant]
  7. CRESTOR [Concomitant]

REACTIONS (2)
  - Upper extremity mass [Not Recovered/Not Resolved]
  - Arthralgia [Recovered/Resolved]
